FAERS Safety Report 10622044 (Version 1)
Quarter: 2014Q4

REPORT INFORMATION
  Report Type: Spontaneous
  Country: US (occurrence: None)
  Receive Date: 20141201
  Receipt Date: 20141201
  Transmission Date: 20150529
  Serious: Yes (Other)
  Sender: FDA-Public Use
  Company Number: None

PATIENT
  Age: 25 Year
  Sex: Female
  Weight: 56.7 kg

DRUGS (1)
  1. BENADRYL [Suspect]
     Active Substance: DIPHENHYDRAMINE HYDROCHLORIDE
     Indication: ARTHROPOD BITE
     Dosage: 2 PILLS  AS NEEDED TAKEN BY MOUTH
     Route: 048
     Dates: start: 20141003, end: 20141003

REACTIONS (5)
  - Fatigue [None]
  - Somnolence [None]
  - Eye movement disorder [None]
  - Dropped head syndrome [None]
  - Presyncope [None]

NARRATIVE: CASE EVENT DATE: 20141003
